FAERS Safety Report 24814095 (Version 1)
Quarter: 2025Q1

REPORT INFORMATION
  Report Type: Spontaneous
  Country: US (occurrence: US)
  Receive Date: 20250107
  Receipt Date: 20250107
  Transmission Date: 20250409
  Serious: No
  Sender: GLENMARK
  Company Number: US-GLENMARK PHARMACEUTICALS-2024GMK095282

PATIENT

DRUGS (2)
  1. TERIFLUNOMIDE [Suspect]
     Active Substance: TERIFLUNOMIDE
     Indication: Multiple sclerosis
     Dosage: 14 MILLIGRAM, OD
     Route: 048
     Dates: start: 2020
  2. LO LOESTRIN FE [Concomitant]
     Active Substance: ETHINYL ESTRADIOL\NORETHINDRONE ACETATE
     Indication: Contraception
     Route: 065

REACTIONS (6)
  - Product with quality issue administered [Unknown]
  - Product odour abnormal [Unknown]
  - Product packaging issue [Unknown]
  - Product taste abnormal [Unknown]
  - Product quality issue [Unknown]
  - Product after taste [Unknown]
